FAERS Safety Report 18089117 (Version 1)
Quarter: 2020Q3

REPORT INFORMATION
  Report Type: Other
  Country: CN (occurrence: CN)
  Receive Date: 20200730
  Receipt Date: 20200730
  Transmission Date: 20201103
  Serious: Yes (Death)
  Sender: FDA-Public Use
  Company Number: CN-ROCHE-2574642

PATIENT
  Age: 50 Year

DRUGS (2)
  1. GABAPENTIN. [Suspect]
     Active Substance: GABAPENTIN
     Indication: MALIGNANT MELANOMA
     Route: 048
     Dates: start: 20200219, end: 20200321
  2. VEMURAFENIB. [Suspect]
     Active Substance: VEMURAFENIB
     Indication: MALIGNANT MELANOMA
     Route: 048
     Dates: start: 20200114, end: 20200321

REACTIONS (1)
  - Death [Fatal]

NARRATIVE: CASE EVENT DATE: 20200321
